FAERS Safety Report 5926890-9 (Version None)
Quarter: 2008Q4

REPORT INFORMATION
  Report Type: 
  Country: None (occurrence: None)
  Receive Date: 20081022
  Receipt Date: 20081017
  Transmission Date: 20090506
  Serious: Yes (Hospitalization)
  Sender: FDA-Public Use
  Company Number: FR-WYE-G02163808

PATIENT
  Sex: Male

DRUGS (8)
  1. TAZOCILLINE [Suspect]
     Indication: PNEUMONIA
     Route: 042
     Dates: start: 20080807, end: 20080816
  2. VANCOMYCIN HYDROCHLORIDE [Suspect]
     Indication: PNEUMONIA
     Dosage: UNKNOWN
     Route: 042
     Dates: start: 20080807, end: 20080813
  3. TRIFLUCAN [Concomitant]
     Dosage: UNKNOWN
     Dates: start: 20080813
  4. NEXIUM [Concomitant]
     Dosage: UNKNOWN
  5. RIVOTRIL [Concomitant]
     Dosage: UNKNOWN
  6. NEUPOGEN [Concomitant]
     Dosage: UNKNOWN
  7. AMIKACIN [Suspect]
     Indication: PNEUMONIA
     Dosage: UNKNOWN
     Route: 042
     Dates: start: 20080807, end: 20080813
  8. BACTRIM [Suspect]
     Indication: PNEUMONIA
     Dosage: UNKNOWN
     Route: 042
     Dates: start: 20080807, end: 20080813

REACTIONS (4)
  - DRUG ERUPTION [None]
  - RASH ERYTHEMATOUS [None]
  - RASH PAPULAR [None]
  - RASH PRURITIC [None]
